FAERS Safety Report 7245236-X (Version None)
Quarter: 2011Q1

REPORT INFORMATION
  Report Type: 
  Country: None (occurrence: None)
  Receive Date: 20110126
  Receipt Date: 20110117
  Transmission Date: 20110831
  Serious: Yes (Death, Hospitalization)
  Sender: FDA-Public Use
  Company Number: CA-BRISTOL-MYERS SQUIBB COMPANY-14786925

PATIENT
  Age: 76 Year
  Sex: Female

DRUGS (10)
  1. PREDNISONE [Concomitant]
  2. ORENCIA [Suspect]
     Indication: RHEUMATOID ARTHRITIS
     Dosage: 15JAN,15FEB10,1SEP10 NO.OF INF:20
     Route: 042
     Dates: start: 20090212
  3. LASIX [Concomitant]
  4. IMURAN [Concomitant]
  5. METHOTREXATE SODIUM [Concomitant]
     Dosage: FROM:INJ
  6. PRILOSEC [Concomitant]
  7. FOSAMAX [Concomitant]
  8. FOLIC ACID [Concomitant]
  9. MOBICOX [Concomitant]
  10. NORVASC [Concomitant]

REACTIONS (3)
  - CYSTITIS [None]
  - DEATH [None]
  - DYSPNOEA [None]
